FAERS Safety Report 12871882 (Version 2)
Quarter: 2017Q4

REPORT INFORMATION
  Report Type: Spontaneous
  Country: US (occurrence: US)
  Receive Date: 20161021
  Receipt Date: 20171023
  Transmission Date: 20180320
  Serious: No
  Sender: FDA-Public Use
  Company Number: US-PURDUE-USA-2016-0132519

PATIENT
  Sex: Female

DRUGS (1)
  1. OXYCODONE HCL CR TABLETS (SIMILAR TO NDA 22-272) [Suspect]
     Active Substance: OXYCODONE HYDROCHLORIDE
     Indication: PRODUCT USED FOR UNKNOWN INDICATION
     Dosage: (2) 40 MG, DAILY
     Route: 048
     Dates: end: 201607

REACTIONS (10)
  - Pain [Unknown]
  - Motor dysfunction [Unknown]
  - Hyperhidrosis [Unknown]
  - Mental status changes [Unknown]
  - Unevaluable event [Unknown]
  - Drug withdrawal syndrome [Unknown]
  - Product odour abnormal [Unknown]
  - Mood altered [Unknown]
  - Feeling abnormal [Unknown]
  - Drug intolerance [Unknown]
